FAERS Safety Report 7875497-5 (Version None)
Quarter: 2011Q4

REPORT INFORMATION
  Report Type: 
  Country: None (occurrence: None)
  Receive Date: 20111031
  Receipt Date: 20111025
  Transmission Date: 20120403
  Serious: Yes (Other)
  Sender: FDA-Public Use
  Company Number: NZ-B.I. PHARMACEUTICALS,INC./RIDGEFIELD-2011-AU-01961AU

PATIENT

DRUGS (1)
  1. PRADAXA [Suspect]

REACTIONS (2)
  - OEDEMA PERIPHERAL [None]
  - BRAIN NATRIURETIC PEPTIDE INCREASED [None]
